FAERS Safety Report 19070077 (Version 1)
Quarter: 2021Q1

REPORT INFORMATION
  Report Type: Other
  Country: US (occurrence: GB)
  Receive Date: 20210329
  Receipt Date: 20210329
  Transmission Date: 20210420
  Serious: Yes (Hospitalization, Other)
  Sender: FDA-Public Use
  Company Number: GB-BRECKENRIDGE PHARMACEUTICAL, INC.-2108558

PATIENT
  Age: 34 Year
  Sex: Female
  Weight: 58.51 kg

DRUGS (1)
  1. DULOXETINE. [Suspect]
     Active Substance: DULOXETINE
     Indication: MIGRAINE
     Route: 048

REACTIONS (13)
  - Pain in jaw [None]
  - Fatigue [None]
  - Feeling cold [None]
  - Palpitations [None]
  - Feeling abnormal [None]
  - Hypoaesthesia [None]
  - Dry mouth [None]
  - Diarrhoea [None]
  - Eye movement disorder [None]
  - Gait disturbance [None]
  - Abdominal pain upper [None]
  - Dyspnoea [None]
  - Trismus [None]
